FAERS Safety Report 7577187-5 (Version None)
Quarter: 2011Q2

REPORT INFORMATION
  Report Type: 
  Country: None (occurrence: None)
  Receive Date: 20110628
  Receipt Date: 20110614
  Transmission Date: 20111010
  Serious: Yes (Hospitalization)
  Sender: FDA-Public Use
  Company Number: FR-NOVOPROD-330148

PATIENT
  Age: 85 Year
  Sex: Female

DRUGS (10)
  1. REPAGLINIDE [Suspect]
     Dosage: 8.5 MG( 4MG+4MG+0.5MG), QD
     Route: 048
     Dates: start: 20110409
  2. BISOPROLOL FUMARATE [Concomitant]
  3. MODOPAR [Concomitant]
     Dosage: 3 DAILY
     Route: 065
  4. EXELON [Concomitant]
     Dosage: 4.6 UNK QD
     Route: 062
  5. LANTUS [Suspect]
     Indication: TYPE 2 DIABETES MELLITUS
     Dosage: (18-22 U IN THE MORNING)
     Route: 058
  6. LANTUS [Suspect]
     Dosage: 9 U, QD
     Route: 065
     Dates: start: 20110408
  7. JANUVIA [Suspect]
     Indication: TYPE 2 DIABETES MELLITUS
     Dosage: 1 DF, QD
     Route: 065
  8. VALSARTAN  AND HYDROCHLOROTHIAZIDE [Suspect]
     Dosage: 1 PER DAY
  9. REPAGLINIDE [Suspect]
     Indication: TYPE 2 DIABETES MELLITUS
     Dosage: 4.5 MG( 2MG+2MG+0.5 MG), QD
     Route: 048
     Dates: end: 20110408
  10. LERCANIDIPINE [Concomitant]
     Dosage: 1 PER DAY

REACTIONS (1)
  - MALAISE [None]
